FAERS Safety Report 20643782 (Version 1)
Quarter: 2022Q1

REPORT INFORMATION
  Report Type: Spontaneous
  Country: US (occurrence: None)
  Receive Date: 20220325
  Receipt Date: 20220325
  Transmission Date: 20220423
  Serious: No
  Sender: FDA-Public Use
  Company Number: None

PATIENT
  Sex: Female

DRUGS (1)
  1. OTEZLA [Suspect]
     Active Substance: APREMILAST
     Indication: Genitourinary symptom
     Dosage: FREQUENCY : TWICE A DAY;?
     Route: 048
     Dates: start: 20220303

REACTIONS (4)
  - Drug ineffective [None]
  - Diarrhoea [None]
  - Nausea [None]
  - Depressed mood [None]
